FAERS Safety Report 9700617 (Version 1)
Quarter: 2013Q4

REPORT INFORMATION
  Report Type: Spontaneous
  Country: US (occurrence: US)
  Receive Date: 20131121
  Receipt Date: 20131121
  Transmission Date: 20140711
  Serious: No
  Sender: FDA-Public Use
  Company Number: US-PFIZER INC-2013328540

PATIENT
  Sex: Female

DRUGS (1)
  1. ADVIL [Suspect]
     Indication: ARTHRITIS
     Dosage: EIGHT TABLETS, IN A DAY
     Route: 048
     Dates: start: 201311

REACTIONS (4)
  - Drug prescribing error [Unknown]
  - Off label use [Unknown]
  - Overdose [Unknown]
  - Abdominal discomfort [Unknown]
